FAERS Safety Report 8798163 (Version 1)
Quarter: 2012Q4

REPORT INFORMATION
  Report Type: Spontaneous
  Country: US (occurrence: None)
  Receive Date: 20120917
  Receipt Date: 20120917
  Transmission Date: 20130627
  Serious: Yes (Life-Threatening)
  Sender: FDA-Public Use
  Company Number: None

PATIENT
  Age: 63 Year
  Sex: Female
  Weight: 63.5 kg

DRUGS (2)
  1. ZOLPIDEM TARTRATE [Suspect]
     Indication: CHRONIC INSOMNIA
     Route: 048
     Dates: start: 20091112, end: 20120804
  2. ZOLPIDEM TARTRATE [Suspect]
     Route: 048
     Dates: start: 20091112, end: 20120804

REACTIONS (2)
  - Somnambulism [None]
  - Memory impairment [None]
